FAERS Safety Report 7391651-3 (Version None)
Quarter: 2011Q2

REPORT INFORMATION
  Report Type: 
  Country: None (occurrence: None)
  Receive Date: 20110404
  Receipt Date: 20110322
  Transmission Date: 20111010
  Serious: Yes (Other)
  Sender: FDA-Public Use
  Company Number: US-ELI_LILLY_AND_COMPANY-US201103007685

PATIENT
  Weight: 92.517 kg

DRUGS (11)
  1. ATENOLOL [Concomitant]
  2. ALLEGRA [Concomitant]
     Dosage: UNK, PRN
  3. KLONOPIN [Concomitant]
  4. EFFIENT [Suspect]
     Indication: STENT PLACEMENT
     Dosage: UNK, QD
  5. METFORMIN HCL [Concomitant]
  6. WELLBUTRIN [Concomitant]
  7. SIMVASTATIN [Concomitant]
  8. ENALAPRIL [Concomitant]
  9. LITHIUM [Concomitant]
  10. ASPIRIN [Concomitant]
  11. TYLENOL (CAPLET) [Concomitant]

REACTIONS (2)
  - CORONARY ARTERY RESTENOSIS [None]
  - DEVICE OCCLUSION [None]
